FAERS Safety Report 9719168 (Version 1)
Quarter: 2013Q4

REPORT INFORMATION
  Report Type: Spontaneous
  Country: CN (occurrence: CN)
  Receive Date: 20131127
  Receipt Date: 20131127
  Transmission Date: 20140711
  Serious: Yes (Hospitalization)
  Sender: FDA-Public Use
  Company Number: PHHY2013CN132852

PATIENT
  Age: 21 Month
  Sex: Male

DRUGS (3)
  1. VALPROIC ACID [Suspect]
     Indication: EPILEPSY
     Dosage: 42 MG/KG, UNK
  2. LEVETIRACETAM [Concomitant]
  3. TOPIRAMATE [Concomitant]

REACTIONS (19)
  - Drug-induced liver injury [Unknown]
  - Ammonia increased [Unknown]
  - Aspartate aminotransferase increased [Unknown]
  - Bilirubin conjugated increased [Unknown]
  - Blood bilirubin increased [Unknown]
  - Gamma-glutamyltransferase increased [Unknown]
  - Alanine aminotransferase increased [Unknown]
  - Jaundice [Unknown]
  - Oedema [Unknown]
  - Haemorrhage [Unknown]
  - Blood albumin decreased [Unknown]
  - Prothrombin level decreased [Unknown]
  - Activated partial thromboplastin time prolonged [Unknown]
  - Prothrombin time prolonged [Unknown]
  - Blood fibrinogen decreased [Unknown]
  - Convulsion [Unknown]
  - Drug level increased [Unknown]
  - Hepatic encephalopathy [Unknown]
  - Hepatorenal syndrome [Unknown]
